FAERS Safety Report 13366002 (Version 2)
Quarter: 2017Q2

REPORT INFORMATION
  Report Type: Spontaneous
  Country: US (occurrence: US)
  Receive Date: 20170323
  Receipt Date: 20170629
  Transmission Date: 20170830
  Serious: No
  Sender: FDA-Public Use
  Company Number: US-ALLERGAN-1703399US

PATIENT
  Age: 80 Year
  Sex: Female

DRUGS (3)
  1. NEXIUM [Concomitant]
     Active Substance: ESOMEPRAZOLE MAGNESIUM
     Indication: PRODUCT USED FOR UNKNOWN INDICATION
     Dosage: UNK
     Route: 048
  2. VIBERZI [Suspect]
     Active Substance: ELUXADOLINE
     Dosage: 1 DF, QD
     Route: 065
  3. VIBERZI [Suspect]
     Active Substance: ELUXADOLINE
     Indication: PRODUCT USED FOR UNKNOWN INDICATION
     Dosage: 1 DF, BID
     Route: 065
     Dates: start: 20161115

REACTIONS (6)
  - Inappropriate schedule of drug administration [Unknown]
  - Abdominal pain upper [Unknown]
  - Breath odour [Not Recovered/Not Resolved]
  - Epigastric discomfort [Unknown]
  - Therapeutic response decreased [Unknown]
  - Bowel movement irregularity [Unknown]
